FAERS Safety Report 23893709 (Version 1)
Quarter: 2024Q2

REPORT INFORMATION
  Report Type: Spontaneous
  Country: US (occurrence: None)
  Receive Date: 20240524
  Receipt Date: 20240524
  Transmission Date: 20240715
  Serious: No
  Sender: FDA-Public Use
  Company Number: US-ROCHE-3423238

PATIENT
  Sex: Female

DRUGS (17)
  1. ACTEMRA [Suspect]
     Active Substance: TOCILIZUMAB
     Indication: Giant cell arteritis
     Route: 058
  2. ACTEMRA [Suspect]
     Active Substance: TOCILIZUMAB
  3. ASTAXANTHIN [Concomitant]
     Active Substance: ASTAXANTHIN
  4. CRANBERRY [Concomitant]
     Active Substance: CRANBERRY
  5. CREON [Concomitant]
     Active Substance: PANCRELIPASE AMYLASE\PANCRELIPASE LIPASE\PANCRELIPASE PROTEASE
     Dosage: CREON CPE 3000-950 UNIT
  6. FLUCONAZOLE [Concomitant]
     Active Substance: FLUCONAZOLE
  7. GINGER [Concomitant]
     Active Substance: GINGER
  8. LEVOCARNITINE [Concomitant]
     Active Substance: LEVOCARNITINE
  9. LUTEIN [Concomitant]
     Active Substance: LUTEIN
  10. MEDROL [Concomitant]
     Active Substance: METHYLPREDNISOLONE
  11. MUPIROCIN [Concomitant]
     Active Substance: MUPIROCIN
  12. PEPPERMINT OIL [Concomitant]
     Active Substance: PEPPERMINT OIL
  13. DIETARY SUPPLEMENT\RESVERATROL [Concomitant]
     Active Substance: DIETARY SUPPLEMENT\RESVERATROL
  14. HERBALS\SPIRULINA [Concomitant]
     Active Substance: HERBALS\SPIRULINA
  15. TYLENOL [Concomitant]
     Active Substance: ACETAMINOPHEN
  16. XANAX [Concomitant]
     Active Substance: ALPRAZOLAM
  17. ZEAXANTHIN [Concomitant]
     Active Substance: ZEAXANTHIN

REACTIONS (5)
  - Illness [Recovered/Resolved]
  - Headache [Recovered/Resolved]
  - Head discomfort [Recovered/Resolved]
  - Blood pressure increased [Recovered/Resolved]
  - Dizziness [Recovered/Resolved]
